FAERS Safety Report 6810766-9 (Version None)
Quarter: 2010Q2

REPORT INFORMATION
  Report Type: 
  Country: None (occurrence: None)
  Receive Date: 20100630
  Receipt Date: 20070813
  Transmission Date: 20101027
  Serious: No
  Sender: FDA-Public Use
  Company Number: US-PFIZER INC-2007066983

PATIENT
  Age: 83 Year
  Sex: Female

DRUGS (1)
  1. NICOTROL [Suspect]
     Indication: SMOKING CESSATION THERAPY
     Dosage: EVERY OTHER DAY
     Route: 055
     Dates: start: 20070321

REACTIONS (2)
  - NICOTINE DEPENDENCE [None]
  - WEIGHT INCREASED [None]
